FAERS Safety Report 7938467-4 (Version None)
Quarter: 2011Q4

REPORT INFORMATION
  Report Type: 
  Country: None (occurrence: None)
  Receive Date: 20111123
  Receipt Date: 20111114
  Transmission Date: 20120403
  Serious: Yes (Hospitalization, Other)
  Sender: FDA-Public Use
  Company Number: US-ASTRAZENECA-2011SE47783

PATIENT
  Age: 54 Year
  Sex: Female
  Weight: 78 kg

DRUGS (13)
  1. NAPROXEN (ALEVE) [Concomitant]
     Route: 048
  2. PEPCID [Concomitant]
     Route: 048
  3. NEXIUM [Suspect]
     Indication: GASTROOESOPHAGEAL REFLUX DISEASE
     Route: 048
     Dates: start: 20100101, end: 20110801
  4. ENALAPRIL HYDROCHOLOROTHIAZIDE [Concomitant]
     Dosage: 10 MG TO 25 MG
  5. TRAMADOL HCL [Concomitant]
     Route: 048
  6. CITRACAL+D [Concomitant]
  7. ZOLPIDEM [Concomitant]
     Route: 048
  8. ASPIRIN [Concomitant]
     Route: 048
  9. TIZANIDINE HCL [Concomitant]
     Route: 048
  10. DIAZEPAM [Concomitant]
     Route: 048
  11. PRILOSEC [Suspect]
     Indication: GASTROOESOPHAGEAL REFLUX DISEASE
     Route: 048
     Dates: end: 20100101
  12. PRILOSEC [Concomitant]
     Route: 048
  13. GLIMEPIRIDE [Concomitant]
     Route: 048

REACTIONS (8)
  - ARTHRITIS [None]
  - IMPAIRED WORK ABILITY [None]
  - PAIN [None]
  - PAIN IN EXTREMITY [None]
  - NERVE COMPRESSION [None]
  - BACK PAIN [None]
  - SYNCOPE [None]
  - PARALYSIS [None]
